FAERS Safety Report 7433231-7 (Version None)
Quarter: 2011Q2

REPORT INFORMATION
  Report Type: 
  Country: None (occurrence: None)
  Receive Date: 20110415
  Receipt Date: 20110330
  Transmission Date: 20111010
  Serious: Yes (Other)
  Sender: FDA-Public Use
  Company Number: AUR-APL-2011-01186

PATIENT
  Age: 72 Year
  Sex: Male

DRUGS (3)
  1. METOPROLOL SUCCINATE [Suspect]
     Dosage: 100MG - DAILY -
  2. SIMVASTATIN [Suspect]
     Dosage: 40MG-DAILY-
     Dates: start: 20080101
  3. RAMIPRIL [Suspect]
     Dosage: 5MG-DAILY-

REACTIONS (4)
  - GAIT DISTURBANCE [None]
  - HEART RATE DECREASED [None]
  - MUSCULOSKELETAL DISORDER [None]
  - HYPOTENSION [None]
